FAERS Safety Report 4706684-2 (Version None)
Quarter: 2005Q2

REPORT INFORMATION
  Report Type: 
  Country: None (occurrence: None)
  Receive Date: 20050629
  Receipt Date: 20050426
  Transmission Date: 20051028
  Serious: No
  Sender: FDA-Public Use
  Company Number: 05P-163-0298580-00

PATIENT
  Age: 64 Year
  Sex: Female
  Weight: 73.4827 kg

DRUGS (4)
  1. HUMIRA [Suspect]
     Indication: RHEUMATOID ARTHRITIS
     Dosage: 40 MG, 1 IN 2 W, SUBCUTANEOUS
     Route: 058
     Dates: start: 20041001
  2. HYDROXYCHLOROQUINE PHOSPHATE [Concomitant]
  3. ATORVASTATIN CALCIUM [Concomitant]
  4. QUINAPRIL [Concomitant]

REACTIONS (1)
  - RASH [None]
